FAERS Safety Report 7417502-6 (Version None)
Quarter: 2011Q2

REPORT INFORMATION
  Report Type: 
  Country: None (occurrence: None)
  Receive Date: 20110415
  Receipt Date: 20110406
  Transmission Date: 20111010
  Serious: Yes (Hospitalization, Other)
  Sender: FDA-Public Use
  Company Number: US-SANOFI-AVENTIS-2011SA012271

PATIENT
  Sex: Male
  Weight: 85 kg

DRUGS (7)
  1. COUMADIN [Suspect]
     Route: 048
  2. DICLOXACILLIN [Concomitant]
  3. ALDACTONE [Concomitant]
  4. COREG [Concomitant]
  5. MAG-OX [Concomitant]
  6. MULTAQ [Suspect]
     Indication: ATRIAL FIBRILLATION
     Route: 048
     Dates: start: 20100214, end: 20100310
  7. VITAMIN D [Concomitant]
     Dosage: DOSE:50000 UNIT(S)

REACTIONS (3)
  - DECREASED APPETITE [None]
  - NAUSEA [None]
  - SUBDURAL HAEMATOMA [None]
